FAERS Safety Report 23626187 (Version 1)
Quarter: 2024Q1

REPORT INFORMATION
  Report Type: Spontaneous
  Country: PT (occurrence: PT)
  Receive Date: 20240313
  Receipt Date: 20240313
  Transmission Date: 20240410
  Serious: Yes (Hospitalization, Other)
  Sender: FDA-Public Use
  Company Number: PT-B.Braun Medical Inc.-2154317

PATIENT
  Age: 83 Year
  Sex: Female

DRUGS (4)
  1. CEFTRIAXONE SODIUM [Suspect]
     Active Substance: CEFTRIAXONE SODIUM
  2. LINEZOLID [Suspect]
     Active Substance: LINEZOLID
  3. MEROPENEM [Concomitant]
     Active Substance: MEROPENEM
  4. METRONIDAZOLE [Suspect]
     Active Substance: METRONIDAZOLE

REACTIONS (12)
  - Cardiovascular disorder [Recovered/Resolved]
  - Renal disorder [Recovered/Resolved]
  - Myelosuppression [Recovering/Resolving]
  - Lactic acidosis [Recovered/Resolved]
  - Toxicity to various agents [Recovering/Resolving]
  - Nervous system disorder [Recovered/Resolved]
  - Encephalitis [Recovered/Resolved]
  - Urosepsis [Recovered/Resolved]
  - Ecthyma [Recovered/Resolved]
  - Bicytopenia [Recovered/Resolved]
  - Haematological infection [Recovered/Resolved]
  - Septic shock [Recovered/Resolved]
